FAERS Safety Report 13070556 (Version 1)
Quarter: 2016Q4

REPORT INFORMATION
  Report Type: Spontaneous
  Country: BR (occurrence: BR)
  Receive Date: 20161229
  Receipt Date: 20161229
  Transmission Date: 20170207
  Serious: Yes (Other)
  Sender: FDA-Public Use
  Company Number: BR-009507513-1612BRA013448

PATIENT
  Age: 28 Year
  Sex: Female
  Weight: 75 kg

DRUGS (1)
  1. NUVARING [Suspect]
     Active Substance: ETHINYL ESTRADIOL\ETONOGESTREL
     Indication: CONTRACEPTION
     Dosage: 1 VAGINAL RING FOR 3 WEEKS WITH ONE WEEK FOR FREE INTERVAL
     Route: 067
     Dates: start: 2003

REACTIONS (3)
  - Caesarean section [Unknown]
  - Pregnancy with contraceptive device [Recovered/Resolved]
  - Unintended pregnancy [Recovered/Resolved]

NARRATIVE: CASE EVENT DATE: 2008
